FAERS Safety Report 17329844 (Version 1)
Quarter: 2020Q1

REPORT INFORMATION
  Report Type: Spontaneous
  Country: US (occurrence: US)
  Receive Date: 20200127
  Receipt Date: 20200127
  Transmission Date: 20200409
  Serious: Yes (Hospitalization)
  Sender: FDA-Public Use
  Company Number: None

PATIENT
  Age: 52 Year
  Sex: Male

DRUGS (3)
  1. ETOPOSIDE. [Suspect]
     Active Substance: ETOPOSIDE
     Indication: BRAIN NEOPLASM MALIGNANT
     Dosage: ?          OTHER FREQUENCY:FOR 14 DAYS;?
     Route: 048
     Dates: start: 20191231
  2. ONDANSETRON [Concomitant]
     Active Substance: ONDANSETRON
  3. TEMOZOLOMIDE. [Suspect]
     Active Substance: TEMOZOLOMIDE
     Indication: BRAIN NEOPLASM MALIGNANT
     Dosage: ?          OTHER FREQUENCY:1-3;?
     Route: 048
     Dates: start: 20190207

REACTIONS (1)
  - Malaise [None]

NARRATIVE: CASE EVENT DATE: 20200125
